FAERS Safety Report 8727209 (Version 5)
Quarter: 2013Q2

REPORT INFORMATION
  Report Type: Spontaneous
  Country: US (occurrence: US)
  Receive Date: 20120816
  Receipt Date: 20130606
  Transmission Date: 20140414
  Serious: Yes (Death, Other)
  Sender: FDA-Public Use
  Company Number: CHPA2012US018168

PATIENT
  Age: 76 Year
  Sex: Male

DRUGS (2)
  1. VOLTAREN GEL [Suspect]
     Indication: ARTHRITIS
     Dosage: UNK, COUPLE TIMES A DAY AS NEEDED
     Route: 061
     Dates: start: 2011
  2. TRIAMCINOLONE ACETONIDE [Concomitant]
     Indication: NEUROPATHY PERIPHERAL

REACTIONS (2)
  - Renal cancer [Fatal]
  - Gout [Unknown]
